FAERS Safety Report 24140189 (Version 1)
Quarter: 2024Q3

REPORT INFORMATION
  Report Type: Spontaneous
  Country: AU (occurrence: AU)
  Receive Date: 20240726
  Receipt Date: 20240726
  Transmission Date: 20241017
  Serious: Yes (Other)
  Sender: TEVA
  Company Number: AU-TEVA-VS-3222533

PATIENT
  Age: 4 Year
  Sex: Female

DRUGS (11)
  1. OCTREOTIDE [Suspect]
     Active Substance: OCTREOTIDE\OCTREOTIDE ACETATE
     Indication: Product used for unknown indication
     Route: 065
  2. CYANOCOBALAMIN [Concomitant]
     Active Substance: CYANOCOBALAMIN
  3. CYCLIZINE [Concomitant]
     Active Substance: CYCLIZINE
  4. SIROLIMUS [Concomitant]
     Active Substance: SIROLIMUS
  5. ASCORBIC ACID [Concomitant]
     Active Substance: ASCORBIC ACID
  6. VANCOMYCIN [Concomitant]
     Active Substance: VANCOMYCIN
  7. TRAMETINIB [Suspect]
     Active Substance: TRAMETINIB
     Indication: Product used for unknown indication
     Route: 065
  8. ONDANSETRON [Concomitant]
     Active Substance: ONDANSETRON
  9. CEFTRIAXONE [Concomitant]
     Active Substance: CEFTRIAXONE\CEFTRIAXONE SODIUM
  10. FENTANYL [Concomitant]
     Active Substance: FENTANYL\FENTANYL CITRATE
  11. FLUCONAZOLE [Concomitant]
     Active Substance: FLUCONAZOLE

REACTIONS (8)
  - Pneumonia [Unknown]
  - Immunoglobulins decreased [Unknown]
  - Pericardial effusion [Unknown]
  - Pneumothorax [Unknown]
  - Staphylococcal bacteraemia [Unknown]
  - Lymphocyte count [Unknown]
  - Venous thrombosis [Unknown]
  - Lymphatic disorder [Unknown]
